FAERS Safety Report 4281950-6 (Version None)
Quarter: 2004Q1

REPORT INFORMATION
  Report Type: 
  Country: None (occurrence: None)
  Receive Date: 20040128
  Receipt Date: 20040120
  Transmission Date: 20041129
  Serious: Yes (Death)
  Sender: FDA-Public Use
  Company Number: STA-AE-04-002

PATIENT
  Age: 39 Year
  Sex: Male
  Weight: 71 kg

DRUGS (6)
  1. VERAPAMIL [Suspect]
     Indication: ARRHYTHMIA
  2. VERAPAMIL [Suspect]
     Indication: HYPERTENSION
  3. METOPROLOL [Suspect]
     Indication: ARRHYTHMIA
  4. METOPROLOL [Suspect]
     Indication: HYPERTENSION
  5. DIGOXIN [Suspect]
     Indication: ARRHYTHMIA
  6. DIGOXIN [Suspect]
     Indication: HYPERTENSION

REACTIONS (7)
  - BRAIN OEDEMA [None]
  - COMPLETED SUICIDE [None]
  - DRUG TOXICITY [None]
  - HEPATIC STEATOSIS [None]
  - INTENTIONAL OVERDOSE [None]
  - MYOCARDIAL FIBROSIS [None]
  - PULMONARY CONGESTION [None]
